FAERS Safety Report 5080998-1 (Version None)
Quarter: 2006Q3

REPORT INFORMATION
  Report Type: 
  Country: None (occurrence: None)
  Receive Date: 20060816
  Receipt Date: 20060810
  Transmission Date: 20061208
  Serious: Yes (Death)
  Sender: FDA-Public Use
  Company Number: PHRM2006FR02326

PATIENT
  Age: 60 Year
  Sex: Female

DRUGS (1)
  1. SANDOSTATINE (FOR S.C. INJECT.) [Suspect]
     Dosage: 200 UG, TID
     Route: 058
     Dates: start: 20060101

REACTIONS (1)
  - DEATH [None]
